FAERS Safety Report 8547158-0 (Version None)
Quarter: 2012Q3

REPORT INFORMATION
  Report Type: 
  Country: None (occurrence: None)
  Receive Date: 20120727
  Receipt Date: 20120423
  Transmission Date: 20120928
  Serious: No
  Sender: FDA-Public Use
  Company Number: US-ASTRAZENECA-2012SE12113

PATIENT
  Age: 56 Year
  Sex: Female
  Weight: 72.6 kg

DRUGS (19)
  1. SEROQUEL [Suspect]
     Indication: BIPOLAR DISORDER
     Route: 048
  2. SEROQUEL [Suspect]
     Dosage: ONE IN THE MORNING AND TWO IN THE EVENING
     Route: 048
  3. SEROQUEL [Suspect]
     Route: 048
     Dates: start: 20120203
  4. SEROQUEL [Suspect]
     Route: 048
     Dates: start: 20120203
  5. SEROQUEL [Suspect]
     Route: 048
     Dates: start: 20120203
  6. SEROQUEL [Suspect]
     Dosage: 100 MG 1 AM AND 2 PM
     Route: 048
  7. IMITREX [Concomitant]
     Indication: MIGRAINE
     Route: 048
  8. SEROQUEL [Suspect]
     Indication: ANXIETY
     Route: 048
  9. SEROQUEL [Suspect]
     Indication: DEPRESSION
     Route: 048
  10. SEROQUEL [Suspect]
     Dosage: ONE IN THE MORNING AND TWO IN THE EVENING
     Route: 048
  11. SEROQUEL [Suspect]
     Dosage: 100 MG 1 AM AND 2 PM
     Route: 048
  12. SEROQUEL [Suspect]
     Dosage: ONE IN THE MORNING AND TWO IN THE EVENING
     Route: 048
  13. SEROQUEL [Suspect]
     Dosage: 100 MG 1 AM AND 2 PM
     Route: 048
  14. METROGEL [Concomitant]
     Indication: ROSACEA
     Dosage: DAILY
     Route: 061
  15. SEROQUEL [Suspect]
     Dosage: ONE IN THE MORNING AND TWO IN THE EVENING
     Route: 048
  16. SEROQUEL [Suspect]
     Dosage: 100 MG 1 AM AND 2 PM
     Route: 048
  17. PROTONIX [Concomitant]
     Indication: HYPERCHLORHYDRIA
     Route: 048
     Dates: start: 19970101
  18. SEROQUEL [Suspect]
     Indication: SLEEP DISORDER
     Route: 048
  19. SEROQUEL [Suspect]
     Route: 048
     Dates: start: 20120203

REACTIONS (8)
  - OFF LABEL USE [None]
  - MIGRAINE [None]
  - MULTIPLE ALLERGIES [None]
  - THERAPEUTIC RESPONSE UNEXPECTED [None]
  - INTENTIONAL DRUG MISUSE [None]
  - DYSPHONIA [None]
  - UPPER-AIRWAY COUGH SYNDROME [None]
  - INSOMNIA [None]
